FAERS Safety Report 12346713 (Version 1)
Quarter: 2016Q2

REPORT INFORMATION
  Report Type: Spontaneous
  Country: US (occurrence: None)
  Receive Date: 20160506
  Receipt Date: 20160506
  Transmission Date: 20160815
  Serious: Yes (Disabling)
  Sender: FDA-Public Use
  Company Number: None

PATIENT
  Age: 85 Year
  Sex: Female
  Weight: 63.5 kg

DRUGS (5)
  1. FLUROX [Suspect]
     Active Substance: BENOXINATE HYDROCHLORIDE\FLUORESCEIN SODIUM
     Indication: PRODUCT USED FOR UNKNOWN INDICATION
  2. PHENYLEPHRINE HYDROCHLORIDE. [Suspect]
     Active Substance: PHENYLEPHRINE HYDROCHLORIDE
  3. PROPARACAINE [Suspect]
     Active Substance: PROPARACAINE
  4. TROPICAMIDE. [Suspect]
     Active Substance: TROPICAMIDE
  5. VITAMIN E [Concomitant]
     Active Substance: .ALPHA.-TOCOPHEROL

REACTIONS (11)
  - Cough [None]
  - Sneezing [None]
  - Hypersensitivity [None]
  - Sinus disorder [None]
  - Asthenia [None]
  - Throat tightness [None]
  - Pharyngeal oedema [None]
  - Fatigue [None]
  - Dry mouth [None]
  - Pruritus [None]
  - Nausea [None]

NARRATIVE: CASE EVENT DATE: 20160114
